FAERS Safety Report 12069415 (Version 2)
Quarter: 2016Q1

REPORT INFORMATION
  Report Type: Spontaneous
  Country: DE (occurrence: DE)
  Receive Date: 20160211
  Receipt Date: 20160216
  Transmission Date: 20160526
  Serious: Yes (Hospitalization)
  Sender: FDA-Public Use
  Company Number: DE-AMGEN-DEUSP2016013924

PATIENT
  Sex: Female

DRUGS (27)
  1. NEULASTA [Suspect]
     Active Substance: PEGFILGRASTIM
     Indication: B-CELL LYMPHOMA
     Dosage: 6 MG, DAY 4 EACH CYCLE FOR 76 DAY(S)
     Route: 058
     Dates: start: 20151108, end: 20160122
  2. LEVOTHYROXINE SODIUM. [Concomitant]
     Active Substance: LEVOTHYROXINE SODIUM
     Indication: HYPOTHYROIDISM
     Dosage: 125 MICROGRAM, 1 TIMES A DAY(S)
     Route: 048
     Dates: start: 1998
  3. PANTOPRAZOLE SODIUM ANHYDROUS [Concomitant]
     Indication: PROPHYLAXIS
     Dosage: 40 MG, 1 TIMES A DAY(S)
     Route: 048
  4. ACICLOVIR [Concomitant]
     Active Substance: ACYCLOVIR
     Indication: PROPHYLAXIS
     Dosage: 400 MG, 2 TIMES A DAY(S)
     Route: 048
     Dates: start: 201510
  5. BISACODYL. [Concomitant]
     Active Substance: BISACODYL
     Indication: CONSTIPATION
     Dosage: 20 DROPS, AS NEEDED FOR 1 DAY(S)
     Route: 048
     Dates: start: 20160201, end: 20160201
  6. MACROGOL 3350 W/POTASSIUM CHLORIDE//07928301/ [Concomitant]
     Indication: CONSTIPATION
     Dosage: 1 BEG, AS NEEDED
     Route: 048
     Dates: start: 20160131
  7. METHOTREXATE DISODIUM [Suspect]
     Active Substance: METHOTREXATE SODIUM
     Indication: B-CELL LYMPHOMA
     Dosage: 1183 MG, 1 TIMES A DAY(S) FOR 1 DAY(S)
     Route: 042
     Dates: start: 20151013, end: 20151013
  8. RAMIPRIL. [Concomitant]
     Active Substance: RAMIPRIL
     Indication: HYPERTENSION
     Dosage: 2.5 MG, 2 TIMES A DAY(S) FOR 450 DAY(S)
     Route: 048
     Dates: start: 201409, end: 20151124
  9. ALLOPURINOL. [Concomitant]
     Active Substance: ALLOPURINOL
     Indication: PROPHYLAXIS
     Dosage: 300 MG, QD
     Route: 048
     Dates: start: 201510
  10. CIPROFLOXACIN. [Concomitant]
     Active Substance: CIPROFLOXACIN
     Indication: PROPHYLAXIS
     Dosage: 1000 MG, O.D.
     Route: 048
     Dates: start: 20151110
  11. ZOPICLONE [Concomitant]
     Active Substance: ZOPICLONE
     Indication: SLEEP DISORDER
     Dosage: 7.5 MG, O.D.
     Route: 048
  12. DIMENHYDRINATE. [Concomitant]
     Active Substance: DIMENHYDRINATE
     Indication: NAUSEA
     Dosage: 1 VIAL, ONCE FOR 1 DAY(S)
     Route: 042
     Dates: start: 20160128, end: 20160128
  13. METOPROLOL SUCCINATE. [Concomitant]
     Active Substance: METOPROLOL SUCCINATE
     Indication: HYPERTENSION
     Dosage: 47.5 MG, 1/2 DAILY FOR 4711 DAY(S)
     Route: 048
     Dates: start: 2003, end: 20151124
  14. AMPHOTERICIN B. [Concomitant]
     Active Substance: AMPHOTERICIN B
     Indication: PROPHYLAXIS
     Dosage: UNK UNK, TID MOUTH WASH
     Dates: start: 20151111
  15. METOCLOPRAMIDE. [Concomitant]
     Active Substance: METOCLOPRAMIDE
     Indication: NAUSEA
     Dosage: 10 MG, 3 TIMES A DAY(S)
     Route: 048
     Dates: start: 201510
  16. RITUXIMAB [Suspect]
     Active Substance: RITUXIMAB
     Indication: B-CELL LYMPHOMA
     Dosage: 578 MG, UNK
     Route: 042
     Dates: start: 20151009
  17. CYCLOPHOSPHAMIDE. [Suspect]
     Active Substance: CYCLOPHOSPHAMIDE
     Indication: B-CELL LYMPHOMA
     Dosage: 1156 MG, 1 TIMES IN 2 WEEK(S) FOR 76 DAY(S)
     Route: 042
     Dates: start: 20151105, end: 20160119
  18. DOXORUBICIN [Suspect]
     Active Substance: DOXORUBICIN
     Indication: B-CELL LYMPHOMA
     Dosage: 77 MG, 1 TIMES IN 2 WEEK(S) FOR 76 DAY(S)
     Route: 042
     Dates: start: 20151105, end: 20160119
  19. METOPROLOL SUCCINATE. [Concomitant]
     Active Substance: METOPROLOL SUCCINATE
     Dosage: 47.5 MG, 1/2 TABL. DAILY
     Route: 048
     Dates: start: 201512
  20. SULFAMETHOXAZOLE AND TRIMETHOPRIM [Concomitant]
     Active Substance: SULFAMETHOXAZOLE\TRIMETHOPRIM
     Indication: PROPHYLAXIS
     Dosage: 960 MG, EVERY SA, SUND
     Route: 048
     Dates: start: 20151107
  21. VINCRISTINE [Suspect]
     Active Substance: VINCRISTINE
     Indication: B-CELL LYMPHOMA
     Dosage: 1 MG, 1 TIMES IN 2 WEEK(S)
     Route: 042
     Dates: start: 20151202, end: 20151218
  22. LEUCOVORIN                         /00566701/ [Suspect]
     Active Substance: LEUCOVORIN
     Indication: B-CELL LYMPHOMA
     Dosage: 227 MG, 1 TIMES A DAY(S)
     Route: 042
     Dates: start: 20151016, end: 20151022
  23. ACETYLSALICYLIC ACID [Concomitant]
     Active Substance: ASPIRIN
     Indication: CORONARY ARTERY DISEASE
     Dosage: 100 MG, 1 TIMES A DAY(S)
     Route: 048
     Dates: start: 201409
  24. PREDNISOLONE. [Suspect]
     Active Substance: PREDNISOLONE
     Indication: B-CELL LYMPHOMA
     Dosage: 100 MG, DAY 1 TO DAY 5 FOR 80 DAY(S)
     Route: 048
     Dates: start: 20151105, end: 20160123
  25. SIMVASTATIN. [Concomitant]
     Active Substance: SIMVASTATIN
     Indication: HYPERTENSION
     Dosage: 20 MG, 1 TIMES A DAY(S) FOR 4718 DAY(S)
     Route: 048
     Dates: start: 2003, end: 201512
  26. COLECALCIFEROL [Concomitant]
     Active Substance: CHOLECALCIFEROL
     Indication: PROPHYLAXIS
     Dosage: 20000 IE, ON DEMAND FOR 74 DAY(S)
     Route: 048
     Dates: start: 201510, end: 20151213
  27. ONDANSETRON [Concomitant]
     Active Substance: ONDANSETRON
     Indication: NAUSEA
     Dosage: 1 VIAL, ONCE FOR 1 DAY(S)
     Route: 042
     Dates: start: 20160131, end: 20160131

REACTIONS (1)
  - Febrile neutropenia [Recovered/Resolved]

NARRATIVE: CASE EVENT DATE: 20160128
